FAERS Safety Report 5382306-5 (Version None)
Quarter: 2007Q3

REPORT INFORMATION
  Report Type: 
  Country: None (occurrence: None)
  Receive Date: 20070709
  Receipt Date: 20070629
  Transmission Date: 20080115
  Serious: Yes (Other)
  Sender: FDA-Public Use
  Company Number: US-PFIZER INC-2007033067

PATIENT
  Sex: Male
  Weight: 74.8 kg

DRUGS (2)
  1. INSPRA [Suspect]
     Indication: HYPERTENSION
  2. ASPIRIN [Concomitant]

REACTIONS (5)
  - DEPRESSION [None]
  - MUSCLE SPASMS [None]
  - MYALGIA [None]
  - NIGHTMARE [None]
  - VITAMIN D DEFICIENCY [None]
